FAERS Safety Report 15044107 (Version 2)
Quarter: 2024Q3

REPORT INFORMATION
  Report Type: Report from Study
  Country: ES (occurrence: ES)
  Receive Date: 20180621
  Receipt Date: 20240716
  Transmission Date: 20241017
  Serious: Yes (Hospitalization)
  Sender: PURDUE
  Company Number: ES-KYOWA KIRIN-2018BKK000509

PATIENT
  Age: 69 Year
  Sex: Male

DRUGS (29)
  1. MORPHINE SULFATE [Suspect]
     Active Substance: MORPHINE SULFATE
     Indication: Cancer pain
     Dosage: 400 MG, Q12H
     Route: 065
     Dates: start: 201610, end: 201705
  2. MORPHINE SULFATE [Suspect]
     Active Substance: MORPHINE SULFATE
     Dosage: 160 MG IN THE MORNING AND 260 MG IN THE EVENING
     Route: 065
     Dates: start: 201603, end: 201610
  3. MORPHINE SULFATE [Suspect]
     Active Substance: MORPHINE SULFATE
     Dosage: 160 MG IN THE MORNING MAINTAINING 130 MG AT NIGHT
     Route: 065
     Dates: start: 201411
  4. MORPHINE SULFATE [Suspect]
     Active Substance: MORPHINE SULFATE
     Dosage: 130 MG, Q12H
     Route: 065
     Dates: start: 201402
  5. MORPHINE SULFATE [Suspect]
     Active Substance: MORPHINE SULFATE
     Dosage: 100 MG, Q12H
     Route: 065
     Dates: start: 201306, end: 201402
  6. MORPHINE SULFATE [Suspect]
     Active Substance: MORPHINE SULFATE
     Dosage: 130 MG, Q12H
     Route: 065
     Dates: end: 201603
  7. FENTANYL [Suspect]
     Active Substance: FENTANYL\FENTANYL CITRATE
     Indication: Breakthrough pain
     Dosage: 300 MCG PER RESCUE, ABOUT THREE TIMES PER DAY
     Route: 060
  8. FENTANYL [Suspect]
     Active Substance: FENTANYL\FENTANYL CITRATE
     Dosage: 400 MCG PER RESCUE
     Route: 060
     Dates: start: 201801
  9. FENTANYL [Suspect]
     Active Substance: FENTANYL\FENTANYL CITRATE
     Dosage: 300 MCG, UNK
     Route: 060
     Dates: start: 201705
  10. FENTANYL [Suspect]
     Active Substance: FENTANYL\FENTANYL CITRATE
     Dosage: 400 MCG PER RESCUE
     Route: 060
     Dates: end: 201705
  11. FENTANYL [Suspect]
     Active Substance: FENTANYL\FENTANYL CITRATE
     Dosage: 300 MCG FOR RESCUE
     Route: 060
     Dates: start: 201610
  12. FENTANYL [Suspect]
     Active Substance: FENTANYL\FENTANYL CITRATE
     Dosage: 300 MCG AT NIGHT WITH DECUBITUS AND 200 MCG DURING THE DAY, 2 OR 3 RESCUES A DAY IN TOTAL
     Route: 060
     Dates: start: 201603, end: 201610
  13. FENTANYL [Suspect]
     Active Substance: FENTANYL\FENTANYL CITRATE
     Dosage: 200 MCG PER RESCUE
     Route: 060
     Dates: end: 201603
  14. FENTANYL [Suspect]
     Active Substance: FENTANYL\FENTANYL CITRATE
     Dosage: 200 MCG PER RESCUE, 3 OR 4 TIMES PER DAY
     Route: 060
     Dates: start: 201411
  15. FENTANYL [Suspect]
     Active Substance: FENTANYL\FENTANYL CITRATE
     Dosage: 200 MCG PER RESCUE
     Route: 060
     Dates: start: 201402, end: 201411
  16. FENTANYL [Suspect]
     Active Substance: FENTANYL\FENTANYL CITRATE
     Dosage: 100 MCG AS A RESCUE
     Route: 060
     Dates: start: 201306, end: 201402
  17. MORPHINE HYDROCHLORIDE [Suspect]
     Active Substance: MORPHINE HYDROCHLORIDE
     Indication: Cancer pain
     Dosage: UNKNOWN
     Route: 058
     Dates: start: 201801
  18. MORPHINE HYDROCHLORIDE [Suspect]
     Active Substance: MORPHINE HYDROCHLORIDE
     Dosage: UNK
     Route: 065
     Dates: start: 201705
  19. SCOPOLAMINE [Suspect]
     Active Substance: SCOPOLAMINE
     Indication: Cancer pain
     Dosage: UNK
     Route: 065
     Dates: start: 201705
  20. NALOXEGOL [Suspect]
     Active Substance: NALOXEGOL
     Indication: Constipation
     Dosage: 25 MILLIGRAM, Q12H (25 MILLIGRAM, EVERY 12 HRS)
     Route: 065
     Dates: start: 201705
  21. DEXAMETHASONE [Suspect]
     Active Substance: DEXAMETHASONE
     Indication: Cancer pain
     Dosage: UNK
     Route: 065
     Dates: start: 201705
  22. ZOLEDRONIC ACID [Concomitant]
     Active Substance: ZOLEDRONIC ACID
     Indication: Product used for unknown indication
     Dosage: UNKNOWN
     Route: 065
     Dates: start: 201610
  23. ZOLEDRONIC ACID [Concomitant]
     Active Substance: ZOLEDRONIC ACID
     Dosage: UNK
     Route: 065
     Dates: end: 201610
  24. FENTANYL [Concomitant]
     Active Substance: FENTANYL\FENTANYL CITRATE
     Indication: Cancer pain
     Dosage: 300 MCG, EVERY 72 HOURS (300 MICROGRAM, EVERY 3 DAYS)
     Route: 062
  25. ABIRATERONE [Concomitant]
     Active Substance: ABIRATERONE
     Indication: Prostate cancer
     Dosage: UNK
     Route: 065
     Dates: start: 201411, end: 201610
  26. PREDNISONE [Concomitant]
     Active Substance: PREDNISONE
     Indication: Prostate cancer
     Dosage: 10 MILLIGRAM, 1/DAY
     Route: 065
     Dates: start: 201411
  27. DOCETAXEL [Concomitant]
     Active Substance: DOCETAXEL\DOCETAXEL ANHYDROUS
     Indication: Prostate cancer
     Dosage: 6 CYCLES
     Route: 065
  28. DOCETAXEL [Concomitant]
     Active Substance: DOCETAXEL\DOCETAXEL ANHYDROUS
     Dosage: UNK
     Route: 065
  29. DENOSUMAB [Concomitant]
     Active Substance: DENOSUMAB
     Indication: Product used for unknown indication
     Dosage: 120 MILLIGRAM, 1/MONTH
     Route: 065
     Dates: start: 201610

REACTIONS (7)
  - Weight decreased [Unknown]
  - Condition aggravated [Unknown]
  - Decreased appetite [Unknown]
  - Inappropriate schedule of product administration [Unknown]
  - Asthenia [Unknown]
  - Constipation [Recovering/Resolving]
  - Intentional product misuse [Unknown]
